FAERS Safety Report 12159430 (Version 1)
Quarter: 2016Q1

REPORT INFORMATION
  Report Type: Spontaneous
  Country: GB (occurrence: GB)
  Receive Date: 20160308
  Receipt Date: 20160308
  Transmission Date: 20160526
  Serious: Yes (Life-Threatening, Hospitalization, Other)
  Sender: FDA-Public Use
  Company Number: GB-VIIV HEALTHCARE LIMITED-GB2016030480

PATIENT
  Age: 24 Year
  Sex: Male
  Weight: 73 kg

DRUGS (1)
  1. TRIUMEQ [Suspect]
     Active Substance: ABACAVIR SULFATE\DOLUTEGRAVIR SODIUM\LAMIVUDINE
     Indication: HIV INFECTION
     Dosage: ABACAVIR 600MG, LAMIVUDINE 300MG, DOLUTEGRAVIR 50MG
     Route: 048
     Dates: start: 20151216, end: 20160221

REACTIONS (2)
  - Suicide attempt [Unknown]
  - Renal impairment [Unknown]

NARRATIVE: CASE EVENT DATE: 20160221
